FAERS Safety Report 4940995-0 (Version None)
Quarter: 2006Q1

REPORT INFORMATION
  Report Type: 
  Country: None (occurrence: None)
  Receive Date: 20060313
  Receipt Date: 20060216
  Transmission Date: 20060701
  Serious: Yes (Other)
  Sender: FDA-Public Use
  Company Number: PHBS2006ZA02545

PATIENT
  Age: 49 Year
  Sex: Female
  Weight: 55 kg

DRUGS (5)
  1. ZELNORM [Suspect]
     Indication: IRRITABLE BOWEL SYNDROME
     Dosage: 12 MG/DAY
     Route: 048
     Dates: start: 20060210, end: 20060215
  2. HORMONES [Concomitant]
  3. PROVERA [Concomitant]
  4. DORMONOCT [Concomitant]
     Indication: INSOMNIA
     Dosage: 0.25 MG, UNK
  5. LEXOTAN [Concomitant]
     Dosage: 0.25 MG, PRN

REACTIONS (7)
  - BLOOD IRON DECREASED [None]
  - CONSTIPATION [None]
  - DIARRHOEA [None]
  - DIZZINESS [None]
  - HEADACHE [None]
  - HYPOTENSION [None]
  - PALPITATIONS [None]
